FAERS Safety Report 7877782-X (Version None)
Quarter: 2011Q4

REPORT INFORMATION
  Report Type: 
  Country: None (occurrence: None)
  Receive Date: 20111031
  Receipt Date: 20111031
  Transmission Date: 20120403
  Serious: Yes (Hospitalization)
  Sender: FDA-Public Use
  Company Number: None

PATIENT
  Age: 36 Year
  Sex: Male
  Weight: 104.32 kg

DRUGS (1)
  1. ABILIFY [Suspect]
     Indication: ANXIETY
     Dates: start: 20101001, end: 20101001

REACTIONS (8)
  - PALPITATIONS [None]
  - DIZZINESS [None]
  - DYSPNOEA [None]
  - PANIC ATTACK [None]
  - ABNORMAL DREAMS [None]
  - FATIGUE [None]
  - CONFUSIONAL STATE [None]
  - HYPERHIDROSIS [None]
